FAERS Safety Report 7212884 (Version 2)
Quarter: 2014Q1

REPORT INFORMATION
  Report Type: Spontaneous
  Country: US (occurrence: US)
  Receive Date: 20091211
  Receipt Date: 20140203
  Transmission Date: 20141002
  Serious: Yes (Other)
  Sender: FDA-Public Use
  Company Number: US-JNJFOC-20091202343

PATIENT
  Age: 78 Year
  Sex: Female
  Weight: 46.72 kg

DRUGS (13)
  1. DURAGESIC [Suspect]
     Indication: BACK PAIN
     Route: 062
     Dates: start: 20091129, end: 20091201
  2. DURAGESIC [Suspect]
     Indication: BACK PAIN
     Route: 062
     Dates: start: 200909, end: 200911
  3. POTASSIUM [Concomitant]
     Indication: BLOOD POTASSIUM DECREASED
     Route: 048
  4. ATIVAN [Concomitant]
     Indication: NERVOUSNESS
     Route: 048
     Dates: start: 200908
  5. MIRALAX [Concomitant]
     Indication: CONSTIPATION
     Route: 048
     Dates: start: 200908
  6. VITAMIN C [Concomitant]
     Indication: PROPHYLAXIS
     Route: 048
  7. CALCIUM [Concomitant]
     Indication: OSTEOPOROSIS
     Route: 048
  8. HYDROCHLOROTHIAZIDE [Concomitant]
     Indication: BLOOD PRESSURE
     Route: 048
  9. ASPIRIN [Concomitant]
     Indication: HYPERTENSION
     Route: 048
  10. PREDNISONE [Concomitant]
     Indication: CHRONIC OBSTRUCTIVE PULMONARY DISEASE
     Route: 048
  11. ADVAIR [Concomitant]
     Indication: CHRONIC OBSTRUCTIVE PULMONARY DISEASE
     Route: 055
  12. EQUATE STOOL SOFTENER [Concomitant]
     Indication: CONSTIPATION
     Route: 048
  13. HYDROXYCHLOR [Concomitant]
     Indication: BLOOD PRESSURE
     Route: 048

REACTIONS (8)
  - Dyspnoea [Recovered/Resolved]
  - Product adhesion issue [Unknown]
  - Drug ineffective [Recovered/Resolved]
  - Fatigue [Recovered/Resolved]
  - Local swelling [Recovered/Resolved]
  - Nausea [Recovered/Resolved]
  - Feeling abnormal [Recovered/Resolved]
  - Drug dose omission [Recovered/Resolved]
